FAERS Safety Report 5708136-X (Version None)
Quarter: 2008Q2

REPORT INFORMATION
  Report Type: 
  Country: None (occurrence: None)
  Receive Date: 20080417
  Receipt Date: 20080411
  Transmission Date: 20081010
  Serious: Yes (Congenital Anomaly)
  Sender: FDA-Public Use
  Company Number: B0105149A

PATIENT
  Age: 32 Year
  Sex: Female

DRUGS (4)
  1. LAMOTRIGINE [Suspect]
     Indication: EPILEPSY
     Dosage: 200MG PER DAY
     Route: 065
     Dates: start: 19980702, end: 20030818
  2. FOLIC ACID [Concomitant]
     Dosage: 5MG PER DAY
     Dates: start: 19980313
  3. FERROUS FUMARATE [Concomitant]
     Dosage: 200MG PER DAY
     Dates: start: 20010101
  4. PHENOXYMETHYL PENICILLIN [Concomitant]
     Dosage: 250MG PER DAY
     Dates: start: 20010301, end: 20010301

REACTIONS (4)
  - ABORTION INDUCED [None]
  - ANENCEPHALY [None]
  - DRUG EXPOSURE DURING PREGNANCY [None]
  - SPINA BIFIDA [None]
